FAERS Safety Report 25866700 (Version 3)
Quarter: 2025Q4

REPORT INFORMATION
  Report Type: Spontaneous
  Country: BR (occurrence: BR)
  Receive Date: 20250930
  Receipt Date: 20251107
  Transmission Date: 20260118
  Serious: No
  Sender: AMGEN
  Company Number: BR-AMGEN-BRASP2025191614

PATIENT
  Age: 70 Year
  Sex: Female
  Weight: 54.2 kg

DRUGS (2)
  1. PEGFILGRASTIM [Suspect]
     Active Substance: PEGFILGRASTIM
     Indication: Prophylaxis
     Dosage: 10 MG/ML SOL INJ CT SER PREENCH VD TRANS X 0.64 ML , UNK
     Route: 065
  2. PEGFILGRASTIM [Suspect]
     Active Substance: PEGFILGRASTIM
     Dosage: 10 MG/ML SOL INJ CT SER PREENCH VD TRANS X 0.64 ML , UNK
     Route: 065

REACTIONS (2)
  - Device malfunction [Unknown]
  - Drug dose omission by device [Unknown]

NARRATIVE: CASE EVENT DATE: 20250901
